FAERS Safety Report 7269178-9 (Version None)
Quarter: 2011Q1

REPORT INFORMATION
  Report Type: 
  Country: None (occurrence: None)
  Receive Date: 20110202
  Receipt Date: 20110126
  Transmission Date: 20110831
  Serious: No
  Sender: FDA-Public Use
  Company Number: US-PFIZER INC-US-WYE-H18374210

PATIENT
  Sex: Female

DRUGS (1)
  1. RELISTOR [Suspect]
     Dosage: 12 MG, 1X/2 DAY
     Route: 058

REACTIONS (2)
  - NEEDLE ISSUE [None]
  - WRONG TECHNIQUE IN DRUG USAGE PROCESS [None]
